FAERS Safety Report 7882847-2 (Version None)
Quarter: 2011Q4

REPORT INFORMATION
  Report Type: 
  Country: None (occurrence: None)
  Receive Date: 20111101
  Receipt Date: 20110621
  Transmission Date: 20120403
  Serious: No
  Sender: FDA-Public Use
  Company Number: US-AMGEN-USASP2011031619

PATIENT
  Age: 60 Year
  Sex: Female

DRUGS (2)
  1. ENBREL [Suspect]
     Indication: PSORIASIS
     Dosage: 50 MG, QWK
     Dates: start: 20101203
  2. ENBREL [Suspect]
     Indication: RHEUMATOID ARTHRITIS

REACTIONS (9)
  - PAIN IN EXTREMITY [None]
  - FEELING HOT [None]
  - INJECTION SITE ERYTHEMA [None]
  - INJECTION SITE WARMTH [None]
  - INJECTION SITE PRURITUS [None]
  - INJECTION SITE DISCOLOURATION [None]
  - ASTHMA [None]
  - MUSCULOSKELETAL STIFFNESS [None]
  - INJECTION SITE SWELLING [None]
